FAERS Safety Report 9663586 (Version 1)
Quarter: 2013Q4

REPORT INFORMATION
  Report Type: Spontaneous
  Country: US (occurrence: US)
  Receive Date: 20131101
  Receipt Date: 20131101
  Transmission Date: 20140711
  Serious: No
  Sender: FDA-Public Use
  Company Number: US-PFIZER INC-2013311414

PATIENT
  Age: 76 Year
  Sex: Female
  Weight: 92.06 kg

DRUGS (1)
  1. CELEBREX [Suspect]
     Indication: SPONDYLITIS
     Dosage: UNK

REACTIONS (1)
  - Skin discolouration [Unknown]
